FAERS Safety Report 4803009-9 (Version None)
Quarter: 2005Q4

REPORT INFORMATION
  Report Type: 
  Country: None (occurrence: None)
  Receive Date: 20051013
  Receipt Date: 20050928
  Transmission Date: 20060501
  Serious: Yes (Death)
  Sender: FDA-Public Use
  Company Number: JP_050807364

PATIENT
  Age: 53 Year
  Sex: Male
  Weight: 47 kg

DRUGS (9)
  1. ZYPREXA [Suspect]
     Indication: SCHIZOPHRENIA
     Dosage: 20 MG DAY
     Dates: start: 20050809, end: 20050813
  2. ZYPREXA [Suspect]
     Indication: SCHIZOPHRENIA
     Dosage: 10 MG DAY
     Dates: start: 20050728, end: 20050808
  3. HALCION [Concomitant]
  4. ROHYPNOL (FLUNITRAZEPAM) [Concomitant]
  5. VEGETAMIN B [Concomitant]
  6. TRYPTANOL (AMITRIPTYLINE) [Concomitant]
  7. UBRETID (DISTIGMINE BROMIDE) [Concomitant]
  8. POLYFUL (POLYCARBOPHIL CALCIUM) [Concomitant]
  9. PURSENNID [Concomitant]

REACTIONS (4)
  - CARDIO-RESPIRATORY ARREST [None]
  - COMPLETED SUICIDE [None]
  - DISINHIBITION [None]
  - INJURY ASPHYXIATION [None]
